FAERS Safety Report 22616413 (Version 1)
Quarter: 2023Q2

REPORT INFORMATION
  Report Type: Spontaneous
  Country: HR (occurrence: HR)
  Receive Date: 20230619
  Receipt Date: 20230619
  Transmission Date: 20230721
  Serious: Yes (Other)
  Sender: FDA-Public Use
  Company Number: HR-Merck Healthcare KGaA-9408517

PATIENT
  Age: 62 Year
  Sex: Male

DRUGS (4)
  1. ERBITUX [Suspect]
     Active Substance: CETUXIMAB
     Indication: Colon cancer metastatic
     Dosage: UNK UNK, UNKNOWN
     Route: 042
     Dates: start: 202009, end: 202104
  2. IRINOTECAN [Concomitant]
     Active Substance: IRINOTECAN
     Indication: Colon cancer metastatic
     Dosage: UNK
     Dates: start: 202009, end: 202104
  3. LEUCOVORIN [Concomitant]
     Active Substance: LEUCOVORIN
     Indication: Colon cancer metastatic
     Dosage: UNK
     Dates: start: 202009, end: 202104
  4. FLUOROURACIL [Concomitant]
     Active Substance: FLUOROURACIL
     Indication: Colon cancer metastatic
     Dosage: UNK
     Dates: start: 202009, end: 202104

REACTIONS (1)
  - Ileus [Unknown]

NARRATIVE: CASE EVENT DATE: 20210801
